FAERS Safety Report 6058602-5 (Version None)
Quarter: 2009Q1

REPORT INFORMATION
  Report Type: 
  Country: None (occurrence: None)
  Receive Date: 20090130
  Receipt Date: 20090119
  Transmission Date: 20090719
  Serious: Yes (Other)
  Sender: FDA-Public Use
  Company Number: KR-BAYER-200911785GPV

PATIENT
  Age: 31 Year
  Sex: Female

DRUGS (5)
  1. NIFEDIPINE [Suspect]
     Indication: MALIGNANT HYPERTENSION
     Route: 060
  2. HYDRALAZINE HCL [Suspect]
     Indication: MALIGNANT HYPERTENSION
     Route: 042
  3. FOSINOPRIL SODIUM [Suspect]
     Indication: MALIGNANT HYPERTENSION
     Route: 048
  4. CANDESARTAN [Suspect]
     Indication: MALIGNANT HYPERTENSION
     Route: 048
  5. CONTRACEPTIVES NOS [Concomitant]
     Indication: CONTRACEPTION
     Route: 048

REACTIONS (3)
  - CEREBRAL INFARCTION [None]
  - OPTIC ISCHAEMIC NEUROPATHY [None]
  - SPINAL CORD INFARCTION [None]
